FAERS Safety Report 17373750 (Version 2)
Quarter: 2020Q1

REPORT INFORMATION
  Report Type: Spontaneous
  Country: GR (occurrence: GR)
  Receive Date: 20200206
  Receipt Date: 20200324
  Transmission Date: 20200409
  Serious: Yes (Death, Life-Threatening, Other)
  Sender: FDA-Public Use
  Company Number: GR-AMGEN-GRCSP2020017330

PATIENT

DRUGS (6)
  1. EPIRUBICIN [Concomitant]
     Active Substance: EPIRUBICIN
     Indication: ADENOCARCINOMA GASTRIC
     Dosage: 30 MILLIGRAM/SQ. METER, QWK
  2. DEXAMETHASONE. [Concomitant]
     Active Substance: DEXAMETHASONE
     Dosage: 10-20 MILLIGRAM, 30 MIN PRIOR TO DOCETAXEL
     Route: 042
  3. DIPHENHYDRAMINE. [Concomitant]
     Active Substance: DIPHENHYDRAMINE
     Dosage: 25-50 MILLIGRAM, 30 MIN PRIOR TO DOCETAXEL
     Route: 042
  4. CARBOPLATIN. [Concomitant]
     Active Substance: CARBOPLATIN
     Indication: ADENOCARCINOMA GASTRIC
     Dosage: UNK UNK, QWK
  5. FILGRASTIM [Suspect]
     Active Substance: FILGRASTIM
     Indication: PRODUCT USED FOR UNKNOWN INDICATION
     Dosage: 5 MICROGRAM/KILOGRAM, QWK (ON DAYS 3-5)
     Route: 065
  6. DOCETAXEL. [Concomitant]
     Active Substance: DOCETAXEL
     Indication: ADENOCARCINOMA GASTRIC
     Dosage: 30 MILLIGRAM/SQ. METER, QWK

REACTIONS (33)
  - Infection [Unknown]
  - Pyrexia [Unknown]
  - Arthralgia [Unknown]
  - Vomiting [Unknown]
  - Diarrhoea [Unknown]
  - Cerebrovascular accident [Fatal]
  - Myocardial ischaemia [Fatal]
  - Myalgia [Unknown]
  - Decreased appetite [Unknown]
  - Oedema peripheral [Unknown]
  - Pulmonary embolism [Fatal]
  - Anaemia [Unknown]
  - Nausea [Unknown]
  - Gastritis [Unknown]
  - Leukopenia [Unknown]
  - Treatment failure [Unknown]
  - Gastric cancer [Fatal]
  - Hepatotoxicity [Unknown]
  - Thrombosis [Unknown]
  - Alopecia [Unknown]
  - Stomatitis [Unknown]
  - Therapeutic product effect incomplete [Unknown]
  - Headache [Unknown]
  - Neutropenia [Unknown]
  - Malignant neoplasm progression [Unknown]
  - Neuropathy peripheral [Unknown]
  - Pain [Unknown]
  - Constipation [Unknown]
  - Fatigue [Unknown]
  - Respiratory tract infection [Fatal]
  - Adverse event [Unknown]
  - Thrombocytopenia [Unknown]
  - Rash [Unknown]
